FAERS Safety Report 24621420 (Version 1)
Quarter: 2024Q4

REPORT INFORMATION
  Report Type: Spontaneous
  Country: GB (occurrence: GB)
  Receive Date: 20241114
  Receipt Date: 20241114
  Transmission Date: 20250115
  Serious: Yes (Other)
  Sender: ELI LILLY AND COMPANY
  Company Number: GB-MHRA-EMIS-650-00777f02-27a3-4d36-81c3-47d8ec8b2f47

PATIENT
  Age: 52 Year
  Sex: Female
  Weight: 135 kg

DRUGS (2)
  1. MOUNJARO [Suspect]
     Active Substance: TIRZEPATIDE
     Indication: Product used for unknown indication
     Dosage: 5 MG, WEEKLY (1/W)
     Route: 058
     Dates: start: 20241003
  2. SPIKEVAX [Concomitant]
     Active Substance: CX-046684
     Indication: Product used for unknown indication
     Dosage: 0.5 ML
     Route: 030
     Dates: start: 20241019, end: 20241019

REACTIONS (4)
  - Swelling face [Recovered/Resolved]
  - Swollen tongue [Unknown]
  - Drug hypersensitivity [Unknown]
  - Vomiting [Unknown]

NARRATIVE: CASE EVENT DATE: 20241025
